FAERS Safety Report 12485130 (Version 1)
Quarter: 2016Q2

REPORT INFORMATION
  Report Type: Spontaneous
  Country: CH (occurrence: CH)
  Receive Date: 20160621
  Receipt Date: 20160621
  Transmission Date: 20160815
  Serious: Yes (Other)
  Sender: FDA-Public Use
  Company Number: CH-ELI_LILLY_AND_COMPANY-CH201606007207

PATIENT
  Age: 31 Year
  Sex: Female

DRUGS (1)
  1. FLUCTINE [Suspect]
     Active Substance: FLUOXETINE HYDROCHLORIDE
     Indication: BULIMIA NERVOSA
     Dosage: 40 MG, QD
     Route: 048
     Dates: start: 2015, end: 20160525

REACTIONS (4)
  - Anxiety [Unknown]
  - Binge eating [Unknown]
  - Exposure during pregnancy [Unknown]
  - Mood swings [Unknown]

NARRATIVE: CASE EVENT DATE: 20160504
